FAERS Safety Report 26001775 (Version 4)
Quarter: 2025Q4

REPORT INFORMATION
  Report Type: Report from Study
  Country: US (occurrence: None)
  Receive Date: 20251105
  Receipt Date: 20251211
  Transmission Date: 20260118
  Serious: Yes (Hospitalization, Other)
  Sender: UCB
  Company Number: US-UCBSA-2025068219

PATIENT
  Age: 19 Year
  Weight: 60 kg

DRUGS (2)
  1. FENFLURAMINE [Suspect]
     Active Substance: FENFLURAMINE
     Indication: Lennox-Gastaut syndrome
     Dosage: 2 ML QAM + 3.5 ML QPM
  2. FENFLURAMINE [Suspect]
     Active Substance: FENFLURAMINE
     Dosage: 0.195 MILLIGRAM/KILOGRAM (5.5 MLLLIGRAM/DAY)

REACTIONS (4)
  - Hospitalisation [Not Recovered/Not Resolved]
  - Aortic valve incompetence [Not Recovered/Not Resolved]
  - Drooling [Recovered/Resolved]
  - Product use issue [Unknown]
